FAERS Safety Report 8070300-5 (Version None)
Quarter: 2012Q1

REPORT INFORMATION
  Report Type: 
  Country: None (occurrence: None)
  Receive Date: 20120125
  Receipt Date: 20120112
  Transmission Date: 20120608
  Serious: Yes (Other)
  Sender: FDA-Public Use
  Company Number: DE-UCBSA-050023

PATIENT
  Age: 24 Hour
  Sex: Female
  Weight: 3.04 kg

DRUGS (2)
  1. KEPPRA [Suspect]
     Dosage: TOTAL DAILY DOSE : 500 MG
     Route: 064
     Dates: end: 20110101
  2. VIMPAT [Suspect]
     Indication: EPILEPSY
     Dosage: TOTAL DAILY DOSE : 200 MG
     Route: 064
     Dates: end: 20110101

REACTIONS (3)
  - PREMATURE BABY [None]
  - FOETAL MALPOSITION [None]
  - FOETAL EXPOSURE DURING PREGNANCY [None]
